FAERS Safety Report 25921603 (Version 2)
Quarter: 2025Q4

REPORT INFORMATION
  Report Type: Spontaneous
  Country: EU (occurrence: EU)
  Receive Date: 20251014
  Receipt Date: 20251030
  Transmission Date: 20260117
  Serious: Yes (Other)
  Sender: MERCK SHARP & DOHME LLC
  Company Number: None

PATIENT
  Age: 50 Year
  Sex: Female
  Weight: 58 kg

DRUGS (11)
  1. KEYTRUDA [Suspect]
     Active Substance: PEMBROLIZUMAB
     Indication: Invasive breast carcinoma
     Dosage: 200MG IN 100ML OF NACL 0.9% EVERY 3 WEEKS
     Route: 042
     Dates: start: 20241025
  2. PALONOSETRON [Concomitant]
     Active Substance: PALONOSETRON
     Indication: Prophylaxis of nausea and vomiting
     Dosage: 250MCG X 1 TIME/DAY ON THE DAY OF CHEMOTHERAPY
     Route: 048
  3. DOXORUBICIN ACCORD HEALTHCARE ITALIA [Concomitant]
     Indication: Invasive breast carcinoma
     Dosage: 60MG/M2 IN 250ML OF NACL 0.9% EVERY 3 WEEKS
     Route: 042
     Dates: start: 20250131, end: 20250404
  4. TRIMETON [Concomitant]
     Active Substance: CHLORPHENIRAMINE MALEATE
     Indication: Chemotherapy side effect prophylaxis
     Dosage: 10MG IN 100ML OF NACL 0.9%
     Route: 042
  5. HYDROCORTISONE SODIUM SUCCINATE [Concomitant]
     Active Substance: HYDROCORTISONE SODIUM SUCCINATE
     Indication: Chemotherapy side effect prophylaxis
     Dosage: 200MG IN 100ML OF NACL 0.9%
     Route: 042
  6. CYCLOPHOSPHAMIDE [Concomitant]
     Active Substance: CYCLOPHOSPHAMIDE
     Indication: Invasive breast carcinoma
     Dosage: 600MG/M2 IN 100ML OF 5% GLUCOSE SOLUTION EVERY 3 WEEKS
     Route: 042
     Dates: start: 20250131, end: 20250404
  7. ONDANSETRON [Concomitant]
     Active Substance: ONDANSETRON
     Indication: Prophylaxis of nausea and vomiting
     Dosage: 8MG IN 100ML OF 0.9% NACL
     Route: 042
  8. DEXAMETHASONE [Concomitant]
     Active Substance: DEXAMETHASONE
     Indication: Chemotherapy side effect prophylaxis
     Dosage: 20MG
     Route: 042
  9. APREPITANT [Concomitant]
     Active Substance: APREPITANT
     Indication: Prophylaxis of nausea and vomiting
     Dosage: 125MG X 1 TIME/DAY DAY 1  ?80MG X 1 TIME/DAY DAY 2 AND 3
     Route: 048
  10. CARBOPLATIN [Concomitant]
     Active Substance: CARBOPLATIN
     Indication: Invasive breast carcinoma
     Dosage: 1.5MG/AUC IN 250ML OF 5% GLUCOSE SOLUTION EVERY WEEK
     Route: 042
     Dates: start: 20241025, end: 20250114
  11. PACLITAXEL [Concomitant]
     Active Substance: PACLITAXEL
     Indication: Invasive breast carcinoma
     Dosage: 80MG/M2 IN 250ML OF NACL 0.9% EVERY WEEK
     Route: 042
     Dates: start: 20241025, end: 20250114

REACTIONS (3)
  - Neutropenia [Recovering/Resolving]
  - Leukopenia [Recovering/Resolving]
  - Rash erythematous [Recovered/Resolved]

NARRATIVE: CASE EVENT DATE: 20241220
